FAERS Safety Report 24895148 (Version 1)
Quarter: 2025Q1

REPORT INFORMATION
  Report Type: Report from Study
  Country: CA (occurrence: CA)
  Receive Date: 20250128
  Receipt Date: 20250128
  Transmission Date: 20250409
  Serious: Yes (Hospitalization)
  Sender: TEVA
  Company Number: CA-TEVA-VS-3290863

PATIENT
  Age: 51 Year
  Sex: Female

DRUGS (7)
  1. LETROZOLE [Suspect]
     Active Substance: LETROZOLE
     Indication: Product used for unknown indication
     Route: 065
  2. ZOMETA [Suspect]
     Active Substance: ZOLEDRONIC ACID
     Indication: Product used for unknown indication
     Route: 065
  3. KISQALI [Suspect]
     Active Substance: RIBOCICLIB
     Indication: Breast cancer metastatic
     Route: 048
  4. KISQALI [Suspect]
     Active Substance: RIBOCICLIB
     Indication: Breast cancer metastatic
     Route: 048
  5. KISQALI [Suspect]
     Active Substance: RIBOCICLIB
     Indication: Breast cancer metastatic
     Route: 048
  6. KISQALI [Suspect]
     Active Substance: RIBOCICLIB
     Indication: Breast cancer metastatic
     Route: 065
  7. GOSERELIN [Concomitant]
     Active Substance: GOSERELIN
     Indication: Product used for unknown indication
     Route: 065

REACTIONS (5)
  - Dry mouth [Unknown]
  - Sinusitis [Unknown]
  - Tooth infection [Unknown]
  - Mood altered [Unknown]
  - Fungal pharyngitis [Unknown]
